FAERS Safety Report 5041963-3 (Version None)
Quarter: 2006Q2

REPORT INFORMATION
  Report Type: 
  Country: None (occurrence: None)
  Receive Date: 20060630
  Receipt Date: 20060621
  Transmission Date: 20061013
  Serious: Yes (Hospitalization, Disabling)
  Sender: FDA-Public Use
  Company Number: 2006-06-0241

PATIENT
  Age: 58 Year
  Sex: Female
  Weight: 75 kg

DRUGS (3)
  1. INTRON A              (INTERFERON ALFA-2B RECOMBINANT) [Suspect]
     Indication: HEPATITIS C
     Dosage: 5 MU TIW
     Dates: start: 20050701, end: 20060601
  2. REBETOL [Suspect]
     Indication: HEPATITIS C
     Dosage: 1000-800 MG QD ORAL
     Route: 048
     Dates: start: 20050701, end: 20060601
  3. EUTHYROX [Concomitant]

REACTIONS (10)
  - ANAEMIA [None]
  - APHTHOUS STOMATITIS [None]
  - DISEASE RECURRENCE [None]
  - ESCHERICHIA INFECTION [None]
  - IMMOBILE [None]
  - LUMBAR VERTEBRAL FRACTURE [None]
  - NEUTROPENIA [None]
  - OSTEOPENIA [None]
  - OSTEOPOROSIS [None]
  - URINARY TRACT INFECTION [None]
